FAERS Safety Report 24701212 (Version 1)
Quarter: 2024Q4

REPORT INFORMATION
  Report Type: Spontaneous
  Country: GB (occurrence: GB)
  Receive Date: 20241205
  Receipt Date: 20241205
  Transmission Date: 20250115
  Serious: Yes (Other)
  Sender: SAMSUNG BIOEPIS
  Company Number: None

PATIENT
  Sex: Male

DRUGS (1)
  1. INFLIXIMAB [Suspect]
     Active Substance: INFLIXIMAB
     Indication: Adverse drug reaction
     Dates: start: 2024

REACTIONS (2)
  - Spermatozoa progressive motility abnormal [Unknown]
  - Off label use [Unknown]

NARRATIVE: CASE EVENT DATE: 20240101
